FAERS Safety Report 5024469-7 (Version None)
Quarter: 2006Q2

REPORT INFORMATION
  Report Type: 
  Country: None (occurrence: None)
  Receive Date: 20060613
  Receipt Date: 20041020
  Transmission Date: 20061013
  Serious: Yes (Hospitalization)
  Sender: FDA-Public Use
  Company Number: PHHO2004CH14834

PATIENT
  Age: 61 Year
  Sex: Female
  Weight: 88 kg

DRUGS (5)
  1. TAMOXIFEN CITRATE [Suspect]
     Indication: BREAST CANCER
     Route: 048
     Dates: start: 20010717, end: 20041016
  2. RENITEN [Concomitant]
  3. MODURETIC 5-50 [Concomitant]
  4. SELIPRAN [Concomitant]
  5. ACTRAPID HUMAN [Concomitant]

REACTIONS (2)
  - AUTOIMMUNE HEPATITIS [None]
  - BLOOD IMMUNOGLOBULIN G INCREASED [None]
